FAERS Safety Report 9103506 (Version 1)
Quarter: 2013Q1

REPORT INFORMATION
  Report Type: Spontaneous
  Country: US (occurrence: US)
  Receive Date: 20130219
  Receipt Date: 20130219
  Transmission Date: 20140127
  Serious: No
  Sender: FDA-Public Use
  Company Number: US-PFIZER INC-2013060764

PATIENT
  Age: 48 Year
  Sex: Female
  Weight: 40.36 kg

DRUGS (7)
  1. LYRICA [Suspect]
     Indication: FIBROMYALGIA
     Dosage: UNK, 1X/DAY
     Route: 048
     Dates: start: 201206
  2. LYRICA [Suspect]
     Dosage: 100 MG, 1X/DAY
     Route: 048
  3. CYMBALTA [Concomitant]
     Dosage: UNK
  4. LEVOTHYROXINE [Concomitant]
     Indication: HYPOTHYROIDISM
     Dosage: UNK
  5. MENEST [Concomitant]
     Dosage: UNK
  6. ZYPREXA [Concomitant]
     Indication: DEPRESSION
     Dosage: UNK
  7. TRAZODONE [Concomitant]
     Indication: INSOMNIA
     Dosage: UNK

REACTIONS (5)
  - Ligament sprain [Not Recovered/Not Resolved]
  - Low density lipoprotein increased [Not Recovered/Not Resolved]
  - Discomfort [Unknown]
  - Liver disorder [Unknown]
  - Renal disorder [Unknown]
